FAERS Safety Report 8573424-9 (Version None)
Quarter: 2012Q3

REPORT INFORMATION
  Report Type: 
  Country: None (occurrence: None)
  Receive Date: 20120806
  Receipt Date: 20090407
  Transmission Date: 20120928
  Serious: Yes (Death)
  Sender: FDA-Public Use
  Company Number: GB-CELGENEUS-167-C5013-12080384

PATIENT
  Age: 76 Year
  Sex: Female

DRUGS (11)
  1. CLOPIDOGREL [Concomitant]
     Indication: ANGINA PECTORIS
     Route: 065
  2. LANSOPRAZOLE [Concomitant]
     Route: 065
     Dates: start: 19800901
  3. LACTULOSE [Concomitant]
     Indication: CONSTIPATION
     Route: 065
  4. METOCLOPRAMIDE [Concomitant]
     Indication: HIATUS HERNIA
     Route: 065
     Dates: start: 19800901
  5. NITROGLYCERIN [Concomitant]
     Indication: ANGINA PECTORIS
     Route: 065
     Dates: start: 20040901
  6. SIMVASTATIN [Concomitant]
     Route: 065
     Dates: start: 20060901
  7. LENALIDOMIDE [Suspect]
     Dosage: 5 MILLIGRAM
     Route: 048
     Dates: start: 20070406, end: 20070508
  8. ACETAMINOPHEN [Concomitant]
     Route: 065
  9. PEPTAC [Concomitant]
     Route: 065
     Dates: start: 19800901
  10. LENALIDOMIDE [Suspect]
     Route: 048
     Dates: start: 20061122, end: 20070313
  11. TRAMADOL HCL [Concomitant]
     Route: 065

REACTIONS (1)
  - ENDOMETRIAL CANCER [None]
